FAERS Safety Report 5812872-4 (Version None)
Quarter: 2008Q3

REPORT INFORMATION
  Report Type: 
  Country: None (occurrence: None)
  Receive Date: 20080717
  Receipt Date: 20070921
  Transmission Date: 20090109
  Serious: No
  Sender: FDA-Public Use
  Company Number: A0509496A

PATIENT
  Age: 67 Year
  Sex: Female

DRUGS (2)
  1. NICORETTE (MINT) [Suspect]
     Dates: start: 20040411, end: 20040412
  2. ADVAIR DISKUS 100/50 [Suspect]
     Indication: DRUG USE FOR UNKNOWN INDICATION
     Route: 065

REACTIONS (1)
  - DYSPHONIA [None]
